FAERS Safety Report 7496177-4 (Version None)
Quarter: 2011Q2

REPORT INFORMATION
  Report Type: 
  Country: None (occurrence: None)
  Receive Date: 20110523
  Receipt Date: 20110512
  Transmission Date: 20111010
  Serious: Yes (Hospitalization, Other)
  Sender: FDA-Public Use
  Company Number: PHHY2011BR40886

PATIENT
  Sex: Female

DRUGS (4)
  1. APRESOLINE [Concomitant]
     Dosage: 25 MG, UNK
  2. EXFORGE [Suspect]
     Dosage: 320 MG VALSARTAN + 5 MG AMLODIPINE
  3. ATENOLOL [Concomitant]
  4. HYDROCHLOROTHIAZIDE [Concomitant]

REACTIONS (7)
  - CEREBROVASCULAR ACCIDENT [None]
  - EYE DISORDER [None]
  - OROPHARYNGEAL DISCOMFORT [None]
  - LIMB DISCOMFORT [None]
  - DYSPHONIA [None]
  - HYPERTENSION [None]
  - DENGUE FEVER [None]
